FAERS Safety Report 8910965 (Version 1)
Quarter: 2012Q4

REPORT INFORMATION
  Report Type: 
  Country: JP (occurrence: US)
  Receive Date: 20121116
  Receipt Date: 20121116
  Transmission Date: 20130627
  Serious: Yes (Other)
  Sender: FDA-Public Use
  Company Number: US-JNJFOC-20100604121

PATIENT
  Sex: Male

DRUGS (2)
  1. LEVAQUIN [Suspect]
     Indication: URINARY TRACT INFECTION
     Route: 048
  2. MEDROL DOSE PACK [Suspect]
     Indication: INFLAMMATORY PAIN
     Route: 065

REACTIONS (2)
  - Myofascial pain syndrome [Unknown]
  - Tendon rupture [Not Recovered/Not Resolved]
